FAERS Safety Report 16071144 (Version 1)
Quarter: 2019Q1

REPORT INFORMATION
  Report Type: Spontaneous
  Country: US (occurrence: US)
  Receive Date: 20190314
  Receipt Date: 20190314
  Transmission Date: 20190418
  Serious: No
  Sender: FDA-Public Use
  Company Number: US-PFIZER INC-2019101425

PATIENT
  Age: 71 Year

DRUGS (1)
  1. LYRICA [Suspect]
     Active Substance: PREGABALIN
     Dosage: UNK

REACTIONS (2)
  - Therapeutic response unexpected [Unknown]
  - Pre-existing condition improved [Unknown]
